FAERS Safety Report 16040493 (Version 1)
Quarter: 2019Q2

REPORT INFORMATION
  Report Type: Spontaneous
  Country: US (occurrence: US)
  Receive Date: 20190305
  Receipt Date: 20190305
  Transmission Date: 20190711
  Serious: Yes (Other)
  Sender: FDA-Public Use
  Company Number: None

PATIENT
  Age: 59 Year
  Sex: Female
  Weight: 81 kg

DRUGS (1)
  1. SULFAMETHOXAZOL-E-TMP DS TABLET [Suspect]
     Active Substance: SULFAMETHOXAZOLE\TRIMETHOPRIM
     Indication: URINARY TRACT INFECTION
     Dosage: ?          QUANTITY:20 TABLET(S);?
     Route: 048
     Dates: start: 20190227, end: 20190304

REACTIONS (5)
  - Product use complaint [None]
  - Urinary tract infection [None]
  - Drug ineffective [None]
  - Condition aggravated [None]
  - Product complaint [None]

NARRATIVE: CASE EVENT DATE: 20190227
